FAERS Safety Report 22235854 (Version 1)
Quarter: 2023Q2

REPORT INFORMATION
  Report Type: Spontaneous
  Country: US (occurrence: None)
  Receive Date: 20230419
  Receipt Date: 20230419
  Transmission Date: 20230722
  Serious: No
  Sender: FDA-Public Use
  Company Number: None

PATIENT
  Age: 82 Year
  Sex: Male
  Weight: 77.11 kg

DRUGS (30)
  1. ERLEADA [Suspect]
     Active Substance: APALUTAMIDE
     Indication: Prostate cancer
     Dosage: FREQUENCY : DAILY;?
     Route: 048
     Dates: start: 20221119
  2. ACETAMINOPOHEN [Concomitant]
  3. ACETAMINOPHEN+CODEINE#3 [Concomitant]
  4. ASPIRIN [Concomitant]
  5. ALBUTEROL HFA [Concomitant]
  6. ALBUTEROL [Concomitant]
     Active Substance: ALBUTEROL
  7. ALLOPURINOL [Concomitant]
     Active Substance: ALLOPURINOL
  8. AMBIEN [Concomitant]
     Active Substance: ZOLPIDEM TARTRATE
  9. ATORVASTATIN [Concomitant]
  10. BICALUTAMIDE [Concomitant]
     Active Substance: BICALUTAMIDE
  11. CALCIUM [Concomitant]
     Active Substance: CALCIUM
  12. CEPHALEXIN [Concomitant]
     Active Substance: CEPHALEXIN
  13. CLOPIDOGREL [Concomitant]
     Active Substance: CLOPIDOGREL BISULFATE
  14. FERROUS SULFATE [Concomitant]
  15. FLOMAX [Concomitant]
     Active Substance: TAMSULOSIN HYDROCHLORIDE
  16. CALCIUM 600+VITAMIN D [Concomitant]
  17. LEUPROLIDE [Concomitant]
     Active Substance: LEUPROLIDE
  18. LIDOCAINE [Concomitant]
     Active Substance: LIDOCAINE
  19. METFORMIN [Concomitant]
     Active Substance: METFORMIN HYDROCHLORIDE
  20. METOPROLOL [Concomitant]
     Active Substance: METOPROLOL
  21. NITROSTAT [Concomitant]
     Active Substance: NITROGLYCERIN
  22. NORCO [Concomitant]
     Active Substance: ACETAMINOPHEN\HYDROCODONE BITARTRATE
  23. PANTOPRAZOLE [Concomitant]
  24. SYMBICORT [Concomitant]
  25. TAMSULOSIN [Concomitant]
  26. TRAZODONE [Concomitant]
  27. VITAMIN A,C,3+ZINC+COPPER [Concomitant]
  28. VITAMIN D [Concomitant]
     Active Substance: VITAMIN D NOS
  29. XGEVA [Concomitant]
  30. XTANDI [Concomitant]
     Active Substance: ENZALUTAMIDE

REACTIONS (1)
  - Aortic aneurysm [None]
